FAERS Safety Report 15394489 (Version 3)
Quarter: 2018Q4

REPORT INFORMATION
  Report Type: Spontaneous
  Country: US (occurrence: US)
  Receive Date: 20180918
  Receipt Date: 20181123
  Transmission Date: 20190204
  Serious: Yes (Hospitalization)
  Sender: FDA-Public Use
  Company Number: US-BIOGEN-2018BI00633167

PATIENT
  Age: 34 Year
  Sex: Female

DRUGS (1)
  1. AVONEX [Suspect]
     Active Substance: INTERFERON BETA-1A
     Indication: MULTIPLE SCLEROSIS
     Route: 065
     Dates: start: 20180511

REACTIONS (4)
  - Influenza like illness [Unknown]
  - Multiple allergies [Unknown]
  - Injection site pain [Unknown]
  - Headache [Unknown]

NARRATIVE: CASE EVENT DATE: 20180910
